FAERS Safety Report 5136500-9 (Version None)
Quarter: 2006Q4

REPORT INFORMATION
  Report Type: 
  Country: None (occurrence: None)
  Receive Date: 20061020
  Receipt Date: 20061006
  Transmission Date: 20070319
  Serious: Yes (Hospitalization)
  Sender: FDA-Public Use
  Company Number: 2006AL003125

PATIENT
  Age: 53 Year
  Sex: Female

DRUGS (3)
  1. FLUOXETINE [Suspect]
     Indication: DEPRESSION
     Dosage: 40 MG;QD;PO
     Route: 048
     Dates: start: 20060731, end: 20060830
  2. PREDNISOLONE [Concomitant]
  3. ACETAMINOPHEN [Concomitant]

REACTIONS (2)
  - POLYARTHRITIS [None]
  - RASH [None]
